FAERS Safety Report 9751745 (Version 1)
Quarter: 2013Q4

REPORT INFORMATION
  Report Type: Spontaneous
  Country: US (occurrence: US)
  Receive Date: 20131213
  Receipt Date: 20131213
  Transmission Date: 20140711
  Serious: Yes (Hospitalization, Other)
  Sender: FDA-Public Use
  Company Number: US-BIOGENIDEC-2013BI118100

PATIENT
  Sex: Female

DRUGS (3)
  1. AVONEX [Suspect]
     Indication: MULTIPLE SCLEROSIS
     Route: 030
     Dates: start: 20041026, end: 20060605
  2. WARFARIN [Concomitant]
  3. NOVANTRONE [Concomitant]

REACTIONS (8)
  - Brain mass [Unknown]
  - Knee arthroplasty [Recovered/Resolved]
  - Thrombosis [Unknown]
  - Pulmonary thrombosis [Unknown]
  - Iatrogenic injury [Unknown]
  - Memory impairment [Not Recovered/Not Resolved]
  - Dysuria [Recovered/Resolved]
  - Lower extremity mass [Unknown]
